FAERS Safety Report 5427957-4 (Version None)
Quarter: 2007Q3

REPORT INFORMATION
  Report Type: 
  Country: None (occurrence: None)
  Receive Date: 20070828
  Receipt Date: 20070817
  Transmission Date: 20080115
  Serious: Yes (Other)
  Sender: FDA-Public Use
  Company Number: US-JNJFOC-20070705554

PATIENT
  Sex: Female
  Weight: 58.97 kg

DRUGS (24)
  1. REMICADE [Suspect]
     Route: 042
  2. REMICADE [Suspect]
     Route: 042
  3. REMICADE [Suspect]
     Route: 042
  4. REMICADE [Suspect]
     Route: 042
  5. REMICADE [Suspect]
     Route: 042
  6. REMICADE [Suspect]
     Route: 042
  7. REMICADE [Suspect]
     Route: 042
  8. REMICADE [Suspect]
     Route: 042
  9. REMICADE [Suspect]
     Route: 042
  10. REMICADE [Suspect]
     Route: 042
  11. REMICADE [Suspect]
     Route: 042
  12. REMICADE [Suspect]
     Route: 042
  13. REMICADE [Suspect]
     Route: 042
  14. REMICADE [Suspect]
     Route: 042
  15. REMICADE [Suspect]
     Route: 042
  16. REMICADE [Suspect]
     Route: 042
  17. REMICADE [Suspect]
     Indication: CROHN'S DISEASE
     Route: 042
  18. PRILOSEC [Concomitant]
  19. BEXTRA [Concomitant]
     Route: 048
  20. CALCIUM [Concomitant]
  21. ACTONEL [Concomitant]
  22. MERCAPTOPURINE [Concomitant]
  23. ACIPHEX [Concomitant]
     Route: 048
  24. VITAMIN D [Concomitant]

REACTIONS (13)
  - ARTHRITIS [None]
  - ASTHMA [None]
  - COCCIDIOIDOMYCOSIS [None]
  - CROHN'S DISEASE [None]
  - GASTROOESOPHAGEAL REFLUX DISEASE [None]
  - HEPATIC FUNCTION ABNORMAL [None]
  - IRRITABLE BOWEL SYNDROME [None]
  - OSTEOPOROSIS [None]
  - ROTATOR CUFF SYNDROME [None]
  - SINUSITIS [None]
  - SMALL INTESTINAL OBSTRUCTION [None]
  - TARSAL TUNNEL SYNDROME [None]
  - TENDONITIS [None]
